FAERS Safety Report 6289132-3 (Version None)
Quarter: 2009Q3

REPORT INFORMATION
  Report Type: 
  Country: None (occurrence: None)
  Receive Date: 20090729
  Receipt Date: 20070815
  Transmission Date: 20100115
  Serious: Yes (Hospitalization, Other)
  Sender: FDA-Public Use
  Company Number: US-ASTRAZENECA-2006UW11013

PATIENT
  Age: 20801 Day
  Sex: Female
  Weight: 90.7 kg

DRUGS (19)
  1. SEROQUEL [Suspect]
     Indication: BIPOLAR DISORDER
     Route: 048
     Dates: start: 19980101
  2. SEROQUEL [Suspect]
     Indication: ANXIETY
     Route: 048
     Dates: start: 19980101
  3. SEROQUEL [Suspect]
     Indication: DEPRESSION
     Route: 048
     Dates: start: 19980101
  4. SEROQUEL [Suspect]
     Indication: AFFECTIVE DISORDER
     Route: 048
     Dates: start: 19980101
  5. SEROQUEL [Suspect]
     Dosage: 25 - 100 MG
     Route: 048
     Dates: start: 19990805, end: 20060327
  6. SEROQUEL [Suspect]
     Dosage: 25 - 100 MG
     Route: 048
     Dates: start: 19990805, end: 20060327
  7. SEROQUEL [Suspect]
     Dosage: 25 - 100 MG
     Route: 048
     Dates: start: 19990805, end: 20060327
  8. SEROQUEL [Suspect]
     Dosage: 25 - 100 MG
     Route: 048
     Dates: start: 19990805, end: 20060327
  9. SEROQUEL [Suspect]
     Route: 048
     Dates: start: 20000101, end: 20060101
  10. SEROQUEL [Suspect]
     Route: 048
     Dates: start: 20000101, end: 20060101
  11. SEROQUEL [Suspect]
     Route: 048
     Dates: start: 20000101, end: 20060101
  12. SEROQUEL [Suspect]
     Route: 048
     Dates: start: 20000101, end: 20060101
  13. XANAX [Concomitant]
     Indication: ANXIETY
     Dosage: 0.5 - 1 MG
     Dates: start: 19930211
  14. AMBIEN [Concomitant]
     Dates: start: 19930101, end: 20060424
  15. LIPITOR [Concomitant]
     Dosage: 20 - 60 MG
     Dates: start: 19980826
  16. LASIX [Concomitant]
     Dosage: 10 - 20 MG
     Dates: start: 19980826
  17. ISO-BID [Concomitant]
     Dates: start: 20000510
  18. ALDACTONE [Concomitant]
     Dates: start: 20000510
  19. ATENOLOL [Concomitant]
     Dates: start: 20000510

REACTIONS (5)
  - DIABETES MELLITUS [None]
  - DIABETIC END STAGE RENAL DISEASE [None]
  - DIABETIC NEPHROPATHY [None]
  - RENAL FAILURE CHRONIC [None]
  - TYPE 2 DIABETES MELLITUS [None]
